FAERS Safety Report 7216538-8 (Version None)
Quarter: 2011Q1

REPORT INFORMATION
  Report Type: 
  Country: None (occurrence: None)
  Receive Date: 20110109
  Receipt Date: 20110106
  Transmission Date: 20110831
  Serious: Yes (Life-Threatening, Hospitalization)
  Sender: FDA-Public Use
  Company Number: US-BRISTOL-MYERS SQUIBB COMPANY-15312275

PATIENT
  Age: 71 Year
  Sex: Female

DRUGS (8)
  1. BLINDED: SAXAGLIPTIN [Suspect]
     Indication: TYPE 2 DIABETES MELLITUS
     Dosage: LAST DOSE 22SEP2010
     Route: 048
     Dates: start: 20100819, end: 20100922
  2. GLUCOPHAGE [Suspect]
     Indication: TYPE 2 DIABETES MELLITUS
     Route: 048
  3. ASPIRIN [Concomitant]
     Dosage: 1DF={100MG
  4. ASPIRIN [Concomitant]
  5. LANTUS [Suspect]
     Indication: TYPE 2 DIABETES MELLITUS
  6. PLACEBO [Suspect]
     Indication: TYPE 2 DIABETES MELLITUS
     Route: 048
     Dates: start: 20100819
  7. HYPERTENSION MEDICATION [Concomitant]
  8. DIABETA [Suspect]
     Indication: TYPE 2 DIABETES MELLITUS

REACTIONS (6)
  - ABDOMINAL PAIN [None]
  - CHOLELITHIASIS [None]
  - HYPOGLYCAEMIA [None]
  - ABDOMINAL PAIN UPPER [None]
  - NAUSEA [None]
  - VOMITING [None]
